FAERS Safety Report 10502691 (Version 1)
Quarter: 2014Q4

REPORT INFORMATION
  Report Type: Spontaneous
  Country: US (occurrence: None)
  Receive Date: 20141002
  Receipt Date: 20141002
  Transmission Date: 20150528
  Serious: Yes (Other)
  Sender: FDA-Public Use
  Company Number: 109466T

PATIENT
  Age: 56 Year
  Sex: Female

DRUGS (2)
  1. CAMPHOR 4%, MENTHOL 10%, METHYL SAL 30%-EQUATE [Suspect]
     Active Substance: CAMPHOR (NATURAL)\MENTHOL\METHYL SALICYLATE
     Indication: PAIN
     Route: 061
     Dates: start: 20140906, end: 20140907
  2. BLOOD PRESSURE AND CHOLESTEROL MEDICIATION [Concomitant]

REACTIONS (3)
  - Blood blister [None]
  - Application site burn [None]
  - Application site vesicles [None]

NARRATIVE: CASE EVENT DATE: 20140908
